FAERS Safety Report 7006087-4 (Version None)
Quarter: 2010Q3

REPORT INFORMATION
  Report Type: 
  Country: None (occurrence: None)
  Receive Date: 20100921
  Receipt Date: 20100909
  Transmission Date: 20110219
  Serious: Yes (Other)
  Sender: FDA-Public Use
  Company Number: AU-PFIZER INC-2010096356

PATIENT
  Age: 75 Year
  Sex: Female
  Weight: 90 kg

DRUGS (5)
  1. NEURONTIN [Suspect]
     Indication: CONVULSION
     Dosage: 300 MG, 1X/DAY
     Route: 048
     Dates: start: 20100501
  2. NEURONTIN [Suspect]
     Indication: NEURALGIA
  3. KARVEZIDE [Concomitant]
     Indication: HYPERTENSION
     Dosage: 12.5/150 1X/DAY
     Route: 048
  4. LIPITOR [Concomitant]
     Indication: HYPERCHOLESTEROLAEMIA
     Dosage: 40 MG, 1X/DAY
     Route: 048
  5. SOMAC [Concomitant]
     Indication: GASTROOESOPHAGEAL REFLUX DISEASE
     Dosage: 40 MG, 2X/DAY
     Route: 048

REACTIONS (8)
  - ABNORMAL DREAMS [None]
  - ALOPECIA [None]
  - CHOLECYSTITIS [None]
  - CHRONIC LYMPHOCYTIC LEUKAEMIA [None]
  - HERPES SIMPLEX [None]
  - INSOMNIA [None]
  - RENAL IMPAIRMENT [None]
  - TERMINAL INSOMNIA [None]
